FAERS Safety Report 7462956-2 (Version None)
Quarter: 2011Q2

REPORT INFORMATION
  Report Type: 
  Country: None (occurrence: None)
  Receive Date: 20110506
  Receipt Date: 20081001
  Transmission Date: 20111010
  Serious: Yes (Other)
  Sender: FDA-Public Use
  Company Number: US-BAYER-2011-006571

PATIENT
  Age: 57 Year
  Sex: Male
  Weight: 68 kg

DRUGS (15)
  1. NPH INSULIN [Concomitant]
     Dosage: 10 UNITS IN MORNING, 6 UNITS AT NIGHT, DAILY
     Route: 058
  2. GENTAMICIN [Concomitant]
     Dosage: 60 MG, UNK
     Route: 042
     Dates: start: 19961124
  3. POTASSIUM CHLORIDE [Concomitant]
     Dosage: 40
     Route: 042
     Dates: start: 19961118, end: 19961118
  4. TRASYLOL [Suspect]
     Indication: CORONARY ARTERY BYPASS
     Dosage: UNK
     Route: 042
     Dates: start: 19961101, end: 19961101
  5. ASPIRIN [Concomitant]
     Route: 048
  6. NEO-SYNEPHRINE 12 HOUR EXTRA MOISTURIZING SPRAY [Concomitant]
     Dosage: 10 MG X2
     Route: 042
     Dates: start: 19961118, end: 19961118
  7. LASIX [Concomitant]
     Dosage: 40 MG, UNK
     Dates: start: 19961212
  8. VASOTEC [Concomitant]
     Dosage: 5 MG, QD
     Route: 048
  9. SODIUM BICARBONATE [Concomitant]
     Dosage: 50 MILLIEQUIVALENTS X4
     Route: 042
     Dates: start: 19961118, end: 19961118
  10. RED BLOOD CELLS [Concomitant]
     Dosage: 2 U, UNK
     Dates: start: 19961121
  11. VANCOMYCIN [Concomitant]
     Dosage: 1 G, UNK
     Dates: start: 19961204
  12. INSULIN REGULAR [INSULIN PORCINE] [Concomitant]
     Dosage: 7 UNITS IN MORNING
     Route: 058
  13. AMICAR [Concomitant]
     Dosage: 5 G X 2
     Route: 042
     Dates: start: 19961118, end: 19961118
  14. HEPARIN [Concomitant]
     Dosage: 30,000 UNITES + 15,000 UNITS CELL SAVER
     Route: 042
     Dates: start: 19961118, end: 19961118
  15. CALCIUM CHLORIDE [Concomitant]
     Dosage: 1 GRAM
     Route: 042
     Dates: start: 19961118, end: 19961118

REACTIONS (6)
  - RENAL FAILURE [None]
  - PAIN [None]
  - ANXIETY [None]
  - MYOCARDIAL INFARCTION [None]
  - INJURY [None]
  - EMOTIONAL DISTRESS [None]
